FAERS Safety Report 6579073-6 (Version None)
Quarter: 2010Q1

REPORT INFORMATION
  Report Type: 
  Country: None (occurrence: None)
  Receive Date: 20100212
  Receipt Date: 20100201
  Transmission Date: 20100710
  Serious: Yes (Hospitalization, Other)
  Sender: FDA-Public Use
  Company Number: US-JNJFOC-20091004881

PATIENT
  Sex: Female
  Weight: 65.77 kg

DRUGS (15)
  1. REMICADE [Suspect]
     Indication: CROHN'S DISEASE
     Route: 042
  2. REMICADE [Suspect]
     Route: 042
  3. ASACOL [Concomitant]
     Route: 048
  4. DIOVAN [Concomitant]
     Route: 048
  5. CALCIUM 500 [Concomitant]
     Route: 048
  6. MULTI-VITAMINS [Concomitant]
     Route: 048
  7. GINKO BILOBA [Concomitant]
     Route: 048
  8. LOTREL [Concomitant]
     Dosage: 5-10 MG
     Route: 048
  9. TRICOR [Concomitant]
     Route: 048
  10. GLUCOPHAGE [Concomitant]
     Route: 048
  11. BIOTIN [Concomitant]
     Route: 048
  12. PRILOSEC [Concomitant]
     Route: 048
  13. AMARYL [Concomitant]
     Route: 048
  14. LYRICA [Concomitant]
     Route: 048
  15. PROCARDIA [Concomitant]
     Route: 048

REACTIONS (10)
  - ABDOMINAL DISTENSION [None]
  - ARTHRALGIA [None]
  - ASTHENIA [None]
  - BLOOD POTASSIUM INCREASED [None]
  - CHEST PAIN [None]
  - OEDEMA PERIPHERAL [None]
  - PAIN [None]
  - SKIN LESION [None]
  - STOMATITIS [None]
  - WEIGHT DECREASED [None]
